FAERS Safety Report 7256283-6 (Version None)
Quarter: 2011Q1

REPORT INFORMATION
  Report Type: 
  Country: None (occurrence: None)
  Receive Date: 20110129
  Receipt Date: 20100604
  Transmission Date: 20110831
  Serious: No
  Sender: FDA-Public Use
  Company Number: US-ABBOTT-10P-163-0648954-00

PATIENT
  Age: 60 Year
  Sex: Female

DRUGS (7)
  1. NAPROXEN [Concomitant]
     Indication: RHEUMATOID ARTHRITIS
  2. CALCIUM [Concomitant]
     Indication: MINERAL SUPPLEMENTATION
     Dosage: DAILY
  3. BACTRIM [Concomitant]
     Indication: URINARY TRACT INFECTION
  4. FOLIC ACID [Concomitant]
     Indication: VITAMIN SUPPLEMENTATION
  5. HUMIRA [Suspect]
     Indication: RHEUMATOID ARTHRITIS
     Dates: start: 20070601, end: 20100606
  6. MTX [Concomitant]
     Indication: RHEUMATOID ARTHRITIS
  7. MULTI-VITAMIN [Concomitant]
     Indication: VITAMIN SUPPLEMENTATION
     Dosage: DAILY

REACTIONS (1)
  - RASH [None]
